FAERS Safety Report 5310982-1 (Version None)
Quarter: 2007Q2

REPORT INFORMATION
  Report Type: 
  Country: None (occurrence: None)
  Receive Date: 20070430
  Receipt Date: 20070419
  Transmission Date: 20071010
  Serious: Yes (Hospitalization)
  Sender: FDA-Public Use
  Company Number: US-JNJFOC-20070404610

PATIENT
  Age: 74 Year
  Sex: Male
  Weight: 72.58 kg

DRUGS (11)
  1. DURAGESIC-100 [Suspect]
     Indication: PAIN MANAGEMENT
     Route: 062
  2. LEVOTHYROXINE SODIUM [Concomitant]
     Indication: THYROID THERAPY
     Route: 048
  3. DOXEPIN HCL [Concomitant]
     Route: 048
  4. PREDNISONE TAB [Concomitant]
     Route: 048
  5. METOPROLOL SUCCINATE [Concomitant]
     Indication: BLOOD PRESSURE
     Route: 048
  6. FUROSEMIDE [Concomitant]
     Indication: DIURETIC THERAPY
     Route: 048
  7. EFFEXOR [Concomitant]
     Route: 048
  8. FLOMAX [Concomitant]
     Route: 048
  9. LIPITOR [Concomitant]
     Route: 048
  10. LARAZEPAM [Concomitant]
     Route: 048
  11. ASPIRIN [Concomitant]
     Route: 048

REACTIONS (2)
  - ANEURYSM [None]
  - CORONARY ARTERY OCCLUSION [None]
